FAERS Safety Report 10759137 (Version 1)
Quarter: 2015Q1

REPORT INFORMATION
  Report Type: Spontaneous
  Country: US (occurrence: None)
  Receive Date: 20150202
  Receipt Date: 20150202
  Transmission Date: 20150721
  Serious: No
  Sender: FDA-Public Use
  Company Number: None

PATIENT
  Age: 39 Year
  Sex: Female
  Weight: 57.15 kg

DRUGS (1)
  1. MIRVASO [Suspect]
     Active Substance: BRIMONIDINE TARTRATE
     Indication: ROSACEA
     Dosage: 1 X A DAY; APPLIED TO A SURFACE, USUALLY THE SKIN
     Route: 061
     Dates: start: 20141202, end: 20141231

REACTIONS (4)
  - Swelling face [None]
  - Application site pain [None]
  - Burning sensation [None]
  - Application site erythema [None]

NARRATIVE: CASE EVENT DATE: 20141231
